FAERS Safety Report 5450728-X (Version None)
Quarter: 2007Q3

REPORT INFORMATION
  Report Type: 
  Country: None (occurrence: None)
  Receive Date: 20070911
  Receipt Date: 20070830
  Transmission Date: 20080115
  Serious: Yes (Hospitalization)
  Sender: FDA-Public Use
  Company Number: 2007TG0104

PATIENT
  Age: 67 Year
  Sex: Female

DRUGS (4)
  1. FENOFIBRATE [Suspect]
     Dosage: 160 MG QD, PO
     Route: 048
  2. ROSUVASTATIN [Suspect]
     Dosage: 10MG FOR 9 MONTHS, THEN 20MG, QD, PO
     Route: 048
  3. HYDROCHLOROTHIAZIDE-OLMESARTAN [Concomitant]
  4. OXAPROZIN [Concomitant]

REACTIONS (11)
  - BLOOD CREATINE PHOSPHOKINASE INCREASED [None]
  - BLOOD PRESSURE ABNORMAL [None]
  - CARDIAC ANEURYSM [None]
  - CARDIAC DISORDER [None]
  - CHEST PAIN [None]
  - EJECTION FRACTION DECREASED [None]
  - MUSCULOSKELETAL PAIN [None]
  - MYOGLOBIN URINE PRESENT [None]
  - PAIN IN EXTREMITY [None]
  - PROTEINURIA [None]
  - URINE ANALYSIS ABNORMAL [None]
